FAERS Safety Report 4381917-3 (Version None)
Quarter: 2004Q2

REPORT INFORMATION
  Report Type: 
  Country: None (occurrence: None)
  Receive Date: 20040615
  Receipt Date: 20031003
  Transmission Date: 20050107
  Serious: Yes (Hospitalization)
  Sender: FDA-Public Use
  Company Number: 2001056699SE

PATIENT
  Age: 44 Year
  Sex: Female

DRUGS (7)
  1. CAMPTOSAR [Suspect]
     Indication: COLORECTAL CANCER
     Dosage: 180MG/M2, SINGLE , IV
     Route: 042
     Dates: start: 20010502, end: 20010502
  2. FLURABALSTIN (FLUOROURACIL) SOLUTION, STERILE [Suspect]
     Indication: COLORECTAL CANCER
     Dosage: SEE IMAGE
     Route: 040
     Dates: start: 20010502, end: 20010502
  3. FLURABALSTIN (FLUOROURACIL) SOLUTION, STERILE [Suspect]
     Indication: COLORECTAL CANCER
     Dosage: SEE IMAGE
     Route: 040
     Dates: start: 20010502, end: 20010502
  4. FLURABALSTIN (FLUOROURACIL) SOLUTION, STERILE [Suspect]
     Indication: COLORECTAL CANCER
     Dosage: SEE IMAGE
     Route: 040
     Dates: start: 20010503, end: 20010503
  5. FLURABALSTIN (FLUOROURACIL) SOLUTION, STERILE [Suspect]
     Indication: COLORECTAL CANCER
     Dosage: SEE IMAGE
     Route: 040
     Dates: start: 20010503, end: 20010503
  6. FOLINIC ACID (FOLINIC ACID) [Suspect]
     Dosage: SEE IMAGE
     Route: 042
     Dates: start: 20010502, end: 20010502
  7. FOLINIC ACID (FOLINIC ACID) [Suspect]
     Dosage: SEE IMAGE
     Route: 042
     Dates: start: 20010503, end: 20010503

REACTIONS (3)
  - BLOOD BILIRUBIN INCREASED [None]
  - HAEMATEMESIS [None]
  - HAEMOGLOBIN DECREASED [None]
